FAERS Safety Report 5141573-3 (Version None)
Quarter: 2006Q4

REPORT INFORMATION
  Report Type: 
  Country: None (occurrence: None)
  Receive Date: 20061026
  Receipt Date: 20061013
  Transmission Date: 20070319
  Serious: Yes (Other)
  Sender: FDA-Public Use
  Company Number: 2006125950

PATIENT
  Sex: Female

DRUGS (1)
  1. XALATAN [Suspect]
     Indication: ABNORMAL SENSATION IN EYE
     Dosage: OPHTHALMIC
     Route: 047
     Dates: start: 20060401

REACTIONS (1)
  - BLINDNESS TRANSIENT [None]
